FAERS Safety Report 4797615-8 (Version None)
Quarter: 2005Q4

REPORT INFORMATION
  Report Type: 
  Country: None (occurrence: None)
  Receive Date: 20051013
  Receipt Date: 20051004
  Transmission Date: 20060501
  Serious: Yes (Other)
  Sender: FDA-Public Use
  Company Number: US-MERCK-0510USA02538

PATIENT
  Age: 63 Year
  Sex: Male
  Weight: 73 kg

DRUGS (8)
  1. VIOXX [Suspect]
     Indication: ARTHRITIS
     Route: 048
     Dates: start: 19981101
  2. PLAVIX [Concomitant]
     Route: 065
  3. PROTONIX [Concomitant]
     Route: 065
  4. [THERAPY UNSPECIFIED] [Concomitant]
     Route: 065
  5. HYTRIN [Concomitant]
     Route: 065
  6. ASPIRIN [Concomitant]
     Route: 065
  7. CLARITIN [Concomitant]
     Route: 065
  8. OS-CAL [Concomitant]
     Route: 065

REACTIONS (4)
  - ANXIETY [None]
  - CHEST PAIN [None]
  - MYOCARDIAL INFARCTION [None]
  - NERVOUSNESS [None]
